FAERS Safety Report 25691458 (Version 1)
Quarter: 2025Q3

REPORT INFORMATION
  Report Type: Spontaneous
  Country: CA (occurrence: CA)
  Receive Date: 20250818
  Receipt Date: 20250818
  Transmission Date: 20251020
  Serious: Yes (Other)
  Sender: JOHNSON AND JOHNSON
  Company Number: CA-JNJFOC-20250815332

PATIENT
  Age: 32 Year
  Sex: Female

DRUGS (11)
  1. REMICADE [Suspect]
     Active Substance: INFLIXIMAB
     Indication: Crohn^s disease
     Dosage: THERAPY DURATION: 281.0 DAYS
     Route: 041
  2. REMICADE [Suspect]
     Active Substance: INFLIXIMAB
     Route: 041
  3. REMICADE [Suspect]
     Active Substance: INFLIXIMAB
     Route: 041
  4. REMICADE [Suspect]
     Active Substance: INFLIXIMAB
     Dosage: THERAPY DURATION: 281.0 DAYS
     Route: 041
  5. REMICADE [Suspect]
     Active Substance: INFLIXIMAB
     Route: 041
  6. PREDNISONE [Suspect]
     Active Substance: PREDNISONE
     Indication: Product used for unknown indication
     Route: 065
  7. ACETAMINOPHEN [Concomitant]
     Active Substance: ACETAMINOPHEN
     Indication: Premedication
     Route: 065
  8. ATIVAN [Concomitant]
     Active Substance: LORAZEPAM
     Indication: Premedication
  9. DIMENHYDRINATE [Concomitant]
     Active Substance: DIMENHYDRINATE
     Indication: Premedication
  10. DIPHENHYDRAMINE [Concomitant]
     Active Substance: DIPHENHYDRAMINE
     Indication: Premedication
  11. DUPIXENT [Concomitant]
     Active Substance: DUPILUMAB
     Indication: Hypereosinophilic syndrome

REACTIONS (6)
  - Osteonecrosis [Unknown]
  - Cold sweat [Unknown]
  - Gallbladder disorder [Unknown]
  - Musculoskeletal discomfort [Unknown]
  - Dizziness [Unknown]
  - Off label use [Unknown]
